FAERS Safety Report 14026492 (Version 30)
Quarter: 2020Q3

REPORT INFORMATION
  Report Type: Spontaneous
  Country: US (occurrence: US)
  Receive Date: 20170929
  Receipt Date: 20200819
  Transmission Date: 20201102
  Serious: Yes (Death, Hospitalization, Other)
  Sender: FDA-Public Use
  Company Number: US-ACTELION-A-US2017-160243

PATIENT
  Age: 63 Year
  Sex: Female
  Weight: 53.06 kg

DRUGS (10)
  1. OPSUMIT [Suspect]
     Active Substance: MACITENTAN
     Indication: PULMONARY ARTERIAL HYPERTENSION
     Dosage: 10 MG, QD
     Route: 048
  2. REMODULIN [Suspect]
     Active Substance: TREPROSTINIL
     Indication: PRODUCT USED FOR UNKNOWN INDICATION
     Dosage: 60 NG/KG, PER MIN
     Route: 042
  3. AMLODIPINE [Concomitant]
     Active Substance: AMLODIPINE BESYLATE
  4. VELETRI [Suspect]
     Active Substance: EPOPROSTENOL
     Indication: PULMONARY ARTERIAL HYPERTENSION
     Dosage: 65 NG/KG, PER MIN
     Route: 042
  5. ADCIRCA [Concomitant]
     Active Substance: TADALAFIL
     Dosage: 40 MG
  6. OPSUMIT [Suspect]
     Active Substance: MACITENTAN
     Dosage: 10 MG, QD
     Route: 048
  7. VELETRI [Suspect]
     Active Substance: EPOPROSTENOL
     Dosage: 64 NG/KG, PER MIN
     Route: 042
  8. VELETRI [Suspect]
     Active Substance: EPOPROSTENOL
     Dosage: 60 NG/KG, PER MIN
     Route: 042
  9. VELETRI [Suspect]
     Active Substance: EPOPROSTENOL
     Dosage: 65.52 NG/KG, PER MIN
     Route: 042
  10. VELETRI [Suspect]
     Active Substance: EPOPROSTENOL
     Dosage: 57 NG/KG, PER MIN
     Route: 042

REACTIONS (37)
  - Peptic ulcer [Unknown]
  - Haemoglobin decreased [Unknown]
  - Fluid overload [Unknown]
  - Feeling abnormal [Recovering/Resolving]
  - Patient dissatisfaction with treatment [Unknown]
  - Chest pain [Unknown]
  - Pulmonary arterial hypertension [Unknown]
  - Nausea [Unknown]
  - Catheter management [Recovered/Resolved]
  - Pulmonary pain [Unknown]
  - Transplant evaluation [Unknown]
  - Head discomfort [Unknown]
  - Dyspnoea exertional [Not Recovered/Not Resolved]
  - Pain [Unknown]
  - Cardiac arrest [Fatal]
  - Transfusion [Unknown]
  - Device leakage [Recovered/Resolved]
  - Headache [Unknown]
  - Pain in jaw [Unknown]
  - Dyspnoea [Not Recovered/Not Resolved]
  - Device dislocation [Recovered/Resolved]
  - Catheter site pruritus [Unknown]
  - Bedridden [Recovering/Resolving]
  - Arthritis [Unknown]
  - Haematocrit decreased [Unknown]
  - Condition aggravated [Unknown]
  - Hypoacusis [Unknown]
  - Rectal haemorrhage [Unknown]
  - Catheter site haemorrhage [Unknown]
  - Product administration error [Unknown]
  - Visual impairment [Unknown]
  - Fatigue [Unknown]
  - Dizziness [Unknown]
  - Arthralgia [Unknown]
  - Diarrhoea [Unknown]
  - Palpitations [Unknown]
  - Asthma [Unknown]

NARRATIVE: CASE EVENT DATE: 20200729
